FAERS Safety Report 8634613 (Version 3)
Quarter: 2012Q4

REPORT INFORMATION
  Report Type: 
  Country: US (occurrence: US)
  Receive Date: 20120626
  Receipt Date: 20121004
  Transmission Date: 20130627
  Serious: Yes (Hospitalization)
  Sender: FDA-Public Use
  Company Number: US-BAYER-2012-061817

PATIENT
  Age: 23 Year
  Sex: Female
  Weight: 86.17 kg

DRUGS (17)
  1. YAZ [Suspect]
     Indication: ACNE
     Dosage: UNK
     Dates: start: 2009, end: 2010
  2. MOBIC [Concomitant]
     Indication: FIBROMYALGIA
     Dosage: 7.5 mg, BID
     Route: 048
  3. NEXIUM [Concomitant]
     Dosage: 40 mg, daily
     Route: 048
  4. NEURONTIN [Concomitant]
     Dosage: 300 mg, daily
     Route: 048
  5. NEURONTIN [Concomitant]
     Dosage: 300mg Capsule; Take one capsule three times daily
  6. MILNACIPRAN HYDROCHLORIDE [Concomitant]
     Indication: FIBROMYALGIA
     Dosage: 50 mg, BID
     Route: 048
  7. MILNACIPRAN HYDROCHLORIDE [Concomitant]
     Indication: FIBROMYALGIA
     Dosage: 50mg daily
  8. CONCERTA [Concomitant]
     Indication: ATTENTION DEFICIT/HYPERACTIVITY DISORDER
     Dosage: 54 mg, QD
     Route: 048
  9. TRAMADOL HYDROCHLORIDE [Concomitant]
     Dosage: 50 mg, daily PRN
     Route: 048
  10. TRAMADOL HYDROCHLORIDE [Concomitant]
     Dosage: 50mg Tablet; Take one tablet twice daily
  11. VICODIN [Concomitant]
     Indication: PAIN
     Dosage: 5/500mg Tablet; 1 or 2 tablets every six hours PRN
     Route: 048
  12. CHERATUSSIN AC [Concomitant]
     Dosage: 10 ml, HS
     Route: 048
  13. PERCOCET [Concomitant]
     Indication: BACK PAIN
     Dosage: 5-325mg Tablet; 1 or 2 tablets every six hours, PRN
     Route: 048
  14. FLEXERIL [Concomitant]
     Indication: MUSCLE SPASMS
     Dosage: 10 mg, every six hours PRN
     Route: 048
  15. ZOFRAN [Concomitant]
     Indication: CONSTIPATION
  16. COLACE [Concomitant]
     Indication: CONSTIPATION
     Dosage: 100 mg, twice daily as needed
  17. MOTRIN [Concomitant]
     Indication: PAIN
     Dosage: Occasionally when needed

REACTIONS (3)
  - Deep vein thrombosis [None]
  - Injury [None]
  - Pain [None]
